FAERS Safety Report 8448006-X (Version None)
Quarter: 2012Q2

REPORT INFORMATION
  Report Type: 
  Country: None (occurrence: None)
  Receive Date: 20120619
  Receipt Date: 20120612
  Transmission Date: 20120825
  Serious: Yes (Life-Threatening, Hospitalization, Other)
  Sender: FDA-Public Use
  Company Number: US-PFIZER INC-2012097256

PATIENT
  Sex: Female

DRUGS (22)
  1. PHENYTOIN [Suspect]
     Indication: CONVULSION
     Dosage: 100 MG, 2 CAPS DAILY AM, + 2 PM
     Route: 048
  2. PREDNISONE [Concomitant]
     Dosage: 20 MG, DAILY FOR DAYS, THEN DISCONTINUE.
  3. GUAIFENESIN [Concomitant]
     Dosage: 600 MG, 2X/DAY
  4. SENOKOT [Concomitant]
     Dosage: 2 TBLETS DAILY
  5. BUTRANS [Suspect]
     Indication: OSTEOARTHRITIS
     Dosage: 10 MCG/HR, WEEKLY
     Route: 062
     Dates: start: 20120117, end: 20120312
  6. COLACE [Concomitant]
     Dosage: 200 MG, AT H.S.
  7. DILANTIN-125 [Suspect]
     Indication: CONVULSION
     Dosage: 160MG EVERY AM AND 200MG EVERY PM
     Route: 065
     Dates: start: 20070809
  8. PROTONIX [Concomitant]
     Dosage: 40 MG, DAILY
  9. DUONEB [Concomitant]
     Dosage: UNK, 4 TIMES DAILY
  10. PREDNISONE [Concomitant]
     Dosage: 40 MG, DAILY FOR 2 DAYS
  11. BISACODYL [Concomitant]
     Dosage: 5 MG, DAILY AS NEEDED
  12. MORPHINE SULFATE [Suspect]
     Indication: BREAKTHROUGH PAIN
     Dosage: 15 MG, IMMEDIATE RELEASE EVERY 4 HOURS AS NEEDED
     Route: 065
  13. AZITHROMYCIN [Concomitant]
     Dosage: 500 MG, DAILY, FOR 4 MORE DAYS
  14. DILANTIN [Concomitant]
     Dosage: 150 MG IN THE MORNING AND 100MG AT H.S., NO DOSAGE CHANGE.
  15. CLONIDINE [Concomitant]
     Dosage: 0.2 MG ONCE A WEEK
  16. ZOFRAN [Concomitant]
     Indication: NAUSEA
     Dosage: 8 MG, DAILY 6 AS NEEDED
  17. BUTRANS [Suspect]
     Indication: BREAKTHROUGH PAIN
  18. TRAMADOL HCL [Suspect]
     Indication: BREAKTHROUGH PAIN
  19. CEFTIN [Concomitant]
     Dosage: 250 MG, 2X/DAY, 4 MORE DAYS
     Route: 048
  20. CITALOPRAM [Concomitant]
     Dosage: 20 MG, 2X/DAY
  21. LORATADINE [Concomitant]
     Dosage: 10 MG, DAILY
  22. TRAMADOL HCL [Suspect]
     Indication: OSTEOARTHRITIS
     Dosage: 50 MG, 4X/DAY EVERY 6 HOURS
     Route: 065
     Dates: start: 20120214

REACTIONS (9)
  - CONVULSION [None]
  - PNEUMONIA [None]
  - MALNUTRITION [None]
  - IMPAIRED GASTRIC EMPTYING [None]
  - HYPERTENSION [None]
  - ABDOMINAL PAIN [None]
  - DRUG LEVEL DECREASED [None]
  - CONSTIPATION [None]
  - ANAEMIA [None]
